FAERS Safety Report 9314585 (Version 1)
Quarter: 2013Q2

REPORT INFORMATION
  Report Type: Spontaneous
  Country: IT (occurrence: IT)
  Receive Date: 20130529
  Receipt Date: 20130529
  Transmission Date: 20140414
  Serious: Yes (Other)
  Sender: FDA-Public Use
  Company Number: IT-ASTELLAS-2013EU004471

PATIENT
  Age: 16 Year
  Sex: Male

DRUGS (4)
  1. TACROLIMUS SYSTEMIC [Suspect]
     Indication: GRAFT VERSUS HOST DISEASE
     Dosage: 4 MG, UNKNOWN/D
     Route: 048
  2. CORTICOSTEROID NOS [Concomitant]
     Indication: GRAFT VERSUS HOST DISEASE
     Dosage: UNK
     Route: 061
  3. PREDNISONE [Concomitant]
     Indication: GRAFT VERSUS HOST DISEASE
     Dosage: 7.5 MG/DAY, UNKNOWN/D
     Route: 048
  4. METHOTREXATE [Concomitant]
     Indication: GRAFT VERSUS HOST DISEASE
     Dosage: 10 MG, UNKNOWN/D
     Route: 030

REACTIONS (2)
  - Drug ineffective for unapproved indication [Unknown]
  - Porokeratosis [Recovering/Resolving]
